FAERS Safety Report 25156934 (Version 1)
Quarter: 2025Q2

REPORT INFORMATION
  Report Type: Spontaneous
  Country: CN (occurrence: CN)
  Receive Date: 20250403
  Receipt Date: 20250403
  Transmission Date: 20250717
  Serious: Yes (Other)
  Sender: ABBVIE
  Company Number: CN-MLMSERVICE-20250326-PI454085-00117-2

PATIENT
  Age: 27 Year
  Sex: Male

DRUGS (6)
  1. FLUOROMETHOLONE [Suspect]
     Active Substance: FLUOROMETHOLONE
     Indication: Postoperative care
     Route: 047
     Dates: start: 2019, end: 2019
  2. LOTEPREDNOL ETABONATE [Suspect]
     Active Substance: LOTEPREDNOL ETABONATE
     Indication: Postoperative care
     Route: 047
     Dates: start: 2019, end: 2019
  3. TOBRAMYCIN AND DEXAMETHASONE [Suspect]
     Active Substance: DEXAMETHASONE\TOBRAMYCIN
     Indication: Postoperative care
     Dosage: PO-OPERATIVE MEDICATIONS
     Route: 047
     Dates: start: 2019, end: 2019
  4. CARBOMER [Concomitant]
     Active Substance: CARBOMER
     Indication: Postoperative care
     Dosage: POST-OPERATIVE MEDICATIONS, 1 TIME AT NIGHT
  5. BLOOD, BOVINE [Concomitant]
     Active Substance: BLOOD, BOVINE
     Indication: Postoperative care
     Dates: start: 2019
  6. SODIUM HYALURONATE [Concomitant]
     Active Substance: HYALURONATE SODIUM
     Indication: Postoperative care
     Route: 047

REACTIONS (1)
  - Keratitis viral [Recovering/Resolving]

NARRATIVE: CASE EVENT DATE: 20190101
